FAERS Safety Report 6804371-8 (Version None)
Quarter: 2010Q2

REPORT INFORMATION
  Report Type: 
  Country: None (occurrence: None)
  Receive Date: 20100628
  Receipt Date: 20070413
  Transmission Date: 20101027
  Serious: No
  Sender: FDA-Public Use
  Company Number: US-PFIZER INC-2007015171

PATIENT
  Sex: Female
  Weight: 83.46 kg

DRUGS (6)
  1. GENOTROPIN [Suspect]
     Indication: BLOOD GROWTH HORMONE DECREASED
     Route: 058
     Dates: start: 20061001, end: 20061201
  2. PREDNISONE [Concomitant]
  3. WARFARIN [Concomitant]
  4. AMBIEN [Concomitant]
  5. FOSAMAX [Concomitant]
  6. LEXAPRO [Concomitant]

REACTIONS (5)
  - DRY SKIN [None]
  - OEDEMA PERIPHERAL [None]
  - PAIN IN EXTREMITY [None]
  - PARAESTHESIA [None]
  - PRURITUS [None]
